FAERS Safety Report 23020034 (Version 2)
Quarter: 2023Q4

REPORT INFORMATION
  Report Type: Spontaneous
  Country: US (occurrence: US)
  Receive Date: 20231003
  Receipt Date: 20231010
  Transmission Date: 20240109
  Serious: No
  Sender: FDA-Public Use
  Company Number: US-AMGEN-USASP2023169413

PATIENT
  Sex: Female

DRUGS (1)
  1. NEULASTA [Suspect]
     Active Substance: PEGFILGRASTIM
     Indication: Breast cancer
     Dosage: UNK
     Route: 065
     Dates: start: 20230921

REACTIONS (3)
  - Device placement issue [Unknown]
  - Product communication issue [Unknown]
  - Device monitoring procedure not performed [Unknown]

NARRATIVE: CASE EVENT DATE: 20230921
